FAERS Safety Report 8082483-1 (Version None)
Quarter: 2012Q1

REPORT INFORMATION
  Report Type: 
  Country: None (occurrence: None)
  Receive Date: 20120127
  Receipt Date: 20110216
  Transmission Date: 20120608
  Serious: No
  Sender: FDA-Public Use
  Company Number: US-ABBOTT-11P-163-0706617-00

PATIENT
  Sex: Female
  Weight: 65.376 kg

DRUGS (3)
  1. SEROQUEL [Concomitant]
     Indication: BIPOLAR DISORDER
  2. HUMIRA [Suspect]
     Indication: CROHN'S DISEASE
     Route: 058
     Dates: start: 20100701, end: 20110202
  3. HUMIRA [Suspect]
     Route: 058
     Dates: start: 20110201

REACTIONS (4)
  - MIGRAINE [None]
  - WEIGHT INCREASED [None]
  - HUNGER [None]
  - CROHN'S DISEASE [None]
